FAERS Safety Report 6969508-9 (Version None)
Quarter: 2010Q3

REPORT INFORMATION
  Report Type: 
  Country: None (occurrence: None)
  Receive Date: 20100907
  Receipt Date: 20100907
  Transmission Date: 20110219
  Serious: Yes (Disabling)
  Sender: FDA-Public Use
  Company Number: None

PATIENT
  Age: 33 Year
  Sex: Female
  Weight: 60.3284 kg

DRUGS (2)
  1. NUVARING [Suspect]
     Indication: RASH MACULO-PAPULAR
     Dosage: 1 RING ONCE EVERY 28 DAYS VAG
     Route: 067
     Dates: start: 20100827, end: 20100901
  2. NUVARING [Suspect]
     Indication: URTICARIA
     Dosage: 1 RING ONCE EVERY 28 DAYS VAG
     Route: 067
     Dates: start: 20100827, end: 20100901

REACTIONS (6)
  - ARTHRALGIA [None]
  - AURICULAR SWELLING [None]
  - DIZZINESS [None]
  - ERYTHEMA [None]
  - RASH ERYTHEMATOUS [None]
  - URTICARIA [None]
